FAERS Safety Report 4448592-0 (Version None)
Quarter: 2004Q3

REPORT INFORMATION
  Report Type: 
  Country: None (occurrence: None)
  Receive Date: 20040909
  Receipt Date: 20040827
  Transmission Date: 20050211
  Serious: Yes (Hospitalization)
  Sender: FDA-Public Use
  Company Number: EM2004-0383

PATIENT
  Age: 48 Year
  Sex: Male

DRUGS (9)
  1. MACROLIN [Suspect]
     Indication: HIV INFECTION
     Dosage: 4.5 MIU, BID, SUBCUTAN.
     Route: 058
     Dates: start: 20040517, end: 20040521
  2. INDINAVIR (INDINAVIR) [Concomitant]
  3. VIREAD [Concomitant]
  4. EPIVIR [Concomitant]
  5. ZECLAR (CLARITHROMYCIN) [Concomitant]
  6. LEDERFOLIN (CALCIUM FOLINATE) [Concomitant]
  7. BACTRIM [Concomitant]
  8. OMEPRAZOLE [Concomitant]
  9. SMECTA ^DAE WOONG^ (SMECTITE) [Concomitant]

REACTIONS (9)
  - ANGIONEUROTIC OEDEMA [None]
  - CHILLS [None]
  - DIARRHOEA [None]
  - DYSPHAGIA [None]
  - DYSPNOEA [None]
  - EATING DISORDER [None]
  - FACE OEDEMA [None]
  - LARYNGEAL OEDEMA [None]
  - PYREXIA [None]
